FAERS Safety Report 13775156 (Version 1)
Quarter: 2017Q3

REPORT INFORMATION
  Report Type: Report from Study
  Country: AT (occurrence: AT)
  Receive Date: 20170720
  Receipt Date: 20170720
  Transmission Date: 20171127
  Serious: Yes (Hospitalization)
  Sender: FDA-Public Use
  Company Number: AT-TEVA-787986ROM

PATIENT
  Age: 28 Year
  Sex: Female

DRUGS (13)
  1. CEFTRIAXONE. [Suspect]
     Active Substance: CEFTRIAXONE
     Indication: SYSTEMIC INFLAMMATORY RESPONSE SYNDROME
     Route: 065
  2. BENZYLPENICILLIN [Suspect]
     Active Substance: PENICILLIN G
     Indication: SYSTEMIC INFLAMMATORY RESPONSE SYNDROME
     Route: 065
  3. CASPOFUNGIN [Concomitant]
     Active Substance: CASPOFUNGIN
     Route: 065
  4. COTRIMOXAZOLE [Suspect]
     Active Substance: SULFAMETHOXAZOLE\TRIMETHOPRIM
     Indication: SYSTEMIC INFLAMMATORY RESPONSE SYNDROME
     Route: 065
  5. MOXIFLOXACIN. [Suspect]
     Active Substance: MOXIFLOXACIN
     Indication: SYSTEMIC INFLAMMATORY RESPONSE SYNDROME
     Route: 065
  6. VALGANCICLOVIR. [Concomitant]
     Active Substance: VALGANCICLOVIR
     Route: 065
  7. LINEZOLID. [Suspect]
     Active Substance: LINEZOLID
     Indication: SYSTEMIC INFLAMMATORY RESPONSE SYNDROME
     Route: 065
  8. DOXYCYCLINE. [Suspect]
     Active Substance: DOXYCYCLINE
     Indication: SYSTEMIC INFLAMMATORY RESPONSE SYNDROME
     Route: 065
  9. PREDNISOLONE. [Suspect]
     Active Substance: PREDNISOLONE
     Indication: STILL^S DISEASE
     Dosage: 100 MILLIGRAM DAILY;
     Route: 065
  10. FLUCLOXACILLIN [Suspect]
     Active Substance: FLUCLOXACILLIN
     Indication: SYSTEMIC INFLAMMATORY RESPONSE SYNDROME
     Route: 065
  11. MEROPENEM. [Suspect]
     Active Substance: MEROPENEM
     Indication: SYSTEMIC INFLAMMATORY RESPONSE SYNDROME
     Route: 065
  12. CIPROFLOXACIN. [Suspect]
     Active Substance: CIPROFLOXACIN
     Indication: SYSTEMIC INFLAMMATORY RESPONSE SYNDROME
     Route: 065
  13. DEXAMETHASONE. [Suspect]
     Active Substance: DEXAMETHASONE
     Indication: STILL^S DISEASE
     Route: 065

REACTIONS (1)
  - Enterocolitis [Recovered/Resolved]
